FAERS Safety Report 4563908-2 (Version None)
Quarter: 2005Q1

REPORT INFORMATION
  Report Type: 
  Country: None (occurrence: None)
  Receive Date: 20050121
  Receipt Date: 20050103
  Transmission Date: 20050727
  Serious: Yes (Hospitalization, Other)
  Sender: FDA-Public Use
  Company Number: USA050187323

PATIENT
  Age: 68 Year
  Sex: Female

DRUGS (3)
  1. HUMALOG [Suspect]
  2. HUMULIN N [Suspect]
     Dosage: 70 U/1 DAY
  3. HUMULIN R [Suspect]
     Dates: start: 20041224, end: 20041226

REACTIONS (7)
  - BLOOD GLUCOSE INCREASED [None]
  - CATARACT [None]
  - DRUG INEFFECTIVE [None]
  - GAIT DISTURBANCE [None]
  - PHARMACEUTICAL PRODUCT COMPLAINT [None]
  - QUADRUPLE VESSEL BYPASS GRAFT [None]
  - UPPER LIMB FRACTURE [None]
